FAERS Safety Report 9498341 (Version 1)
Quarter: 2013Q3

REPORT INFORMATION
  Report Type: Spontaneous
  Country: KR (occurrence: KR)
  Receive Date: 20130904
  Receipt Date: 20130904
  Transmission Date: 20140515
  Serious: Yes (Other)
  Sender: FDA-Public Use
  Company Number: KR-PFIZER INC-2013249724

PATIENT
  Sex: Female

DRUGS (2)
  1. NORVASC [Suspect]
     Dosage: 5 MG, UNK
     Route: 048
  2. MICARDIS [Concomitant]

REACTIONS (2)
  - Arthropathy [Unknown]
  - Oedema peripheral [Unknown]
